FAERS Safety Report 7459848-1 (Version None)
Quarter: 2011Q2

REPORT INFORMATION
  Report Type: 
  Country: None (occurrence: None)
  Receive Date: 20110505
  Receipt Date: 20110422
  Transmission Date: 20111010
  Serious: Yes (Hospitalization, Other)
  Sender: FDA-Public Use
  Company Number: US-ELI_LILLY_AND_COMPANY-US201103004774

PATIENT
  Sex: Female
  Weight: 106.6 kg

DRUGS (5)
  1. CYMBALTA [Suspect]
     Dosage: 60 MG, UNK
  2. DIOVAN [Concomitant]
  3. ABILIFY [Concomitant]
  4. CELEBREX [Concomitant]
  5. CRESTOR [Concomitant]

REACTIONS (6)
  - ALANINE AMINOTRANSFERASE INCREASED [None]
  - PAIN [None]
  - CHOLECYSTECTOMY [None]
  - BLOOD ALKALINE PHOSPHATASE INCREASED [None]
  - RENAL CANCER [None]
  - ASPARTATE AMINOTRANSFERASE INCREASED [None]
